FAERS Safety Report 4943033-9 (Version None)
Quarter: 2006Q1

REPORT INFORMATION
  Report Type: 
  Country: None (occurrence: None)
  Receive Date: 20060314
  Receipt Date: 20040611
  Transmission Date: 20060701
  Serious: Yes (Other)
  Sender: FDA-Public Use
  Company Number: CA-SANOFI-SYNTHELABO-D01200402

PATIENT
  Age: 62 Year
  Sex: Male
  Weight: 59 kg

DRUGS (4)
  1. FONDAPARINUX [Suspect]
     Indication: ACUTE CORONARY SYNDROME
     Dosage: 2.5MG PER DAY
     Route: 058
     Dates: start: 20031219, end: 20031223
  2. ASPIRIN [Concomitant]
     Route: 048
  3. INTEGRILIN [Concomitant]
     Route: 042
  4. PLAVIX [Concomitant]
     Route: 048

REACTIONS (1)
  - THROMBOSIS IN DEVICE [None]
